FAERS Safety Report 23499107 (Version 1)
Quarter: 2024Q1

REPORT INFORMATION
  Report Type: Spontaneous
  Country: FR (occurrence: FR)
  Receive Date: 20240208
  Receipt Date: 20240208
  Transmission Date: 20240409
  Serious: Yes (Death, Other)
  Sender: FDA-Public Use
  Company Number: FR-JNJFOC-20200713067

PATIENT
  Age: 84 Year
  Sex: Female

DRUGS (6)
  1. CYCLOPHOSPHAMIDE [Suspect]
     Active Substance: CYCLOPHOSPHAMIDE
     Indication: Plasma cell myeloma
     Dosage: 1 DF, 1300 MG, FORMULATION- DENTAL LIQUID (PFT)
     Route: 065
     Dates: end: 20180209
  2. CYCLOPHOSPHAMIDE [Suspect]
     Active Substance: CYCLOPHOSPHAMIDE
     Dosage: 500 MG
     Route: 065
     Dates: end: 20180209
  3. DEXAMETHASONE [Suspect]
     Active Substance: DEXAMETHASONE
     Dosage: 2 DF, Q2W,  FORMULATION- DENTAL LIQUID (PFT)
     Route: 065
     Dates: end: 20180209
  4. DEXAMETHASONE [Suspect]
     Active Substance: DEXAMETHASONE
     Indication: Plasma cell myeloma
     Dosage: 20 MG, FORMULATION- DENTAL LIQUID (PFT)
     Route: 065
     Dates: end: 20180209
  5. VELCADE [Suspect]
     Active Substance: BORTEZOMIB
     Dosage: 1 MG/M2/DOSE D1 AND D4
     Route: 065
     Dates: end: 20180209
  6. VELCADE [Suspect]
     Active Substance: BORTEZOMIB
     Indication: Plasma cell myeloma
     Dosage: 2 DF, BIW 2.3MG
     Route: 065
     Dates: end: 20180209

REACTIONS (5)
  - Death [Fatal]
  - Toxicity to various agents [Recovered/Resolved]
  - Drug ineffective [Unknown]
  - Off label use [Unknown]
  - Intentional product use issue [Unknown]
